FAERS Safety Report 23132625 (Version 1)
Quarter: 2023Q4

REPORT INFORMATION
  Report Type: Spontaneous
  Country: FR (occurrence: FR)
  Receive Date: 20231101
  Receipt Date: 20231101
  Transmission Date: 20240110
  Serious: Yes (Other)
  Sender: FDA-Public Use
  Company Number: None

PATIENT

DRUGS (2)
  1. BENLYSTA [Suspect]
     Active Substance: BELIMUMAB
     Indication: Systemic lupus erythematosus
     Dosage: 800 MG (800 MG ONCE A MONTH)
     Route: 042
     Dates: start: 20201210
  2. CELLCEPT [Suspect]
     Active Substance: MYCOPHENOLATE MOFETIL
     Indication: Systemic lupus erythematosus
     Dosage: UNKNOWN DOSE
     Route: 065
     Dates: start: 2006, end: 20221125

REACTIONS (1)
  - Alopecia areata [Recovered/Resolved]

NARRATIVE: CASE EVENT DATE: 20220920
